FAERS Safety Report 19878276 (Version 2)
Quarter: 2021Q4

REPORT INFORMATION
  Report Type: Spontaneous
  Country: US (occurrence: US)
  Receive Date: 20210923
  Receipt Date: 20211006
  Transmission Date: 20220303
  Serious: Yes (Death, Hospitalization)
  Sender: FDA-Public Use
  Company Number: US-TEVA-2021-US-1955540

PATIENT
  Age: 67 Year
  Sex: Female

DRUGS (30)
  1. CELECOXIB [Suspect]
     Active Substance: CELECOXIB
     Indication: Pleuritic pain
     Route: 065
  2. CLONIDINE [Suspect]
     Active Substance: CLONIDINE
     Indication: Pleuritic pain
     Dosage: INTRATHECAL PAIN PUMP
     Route: 037
  3. DEXAMETHASONE [Suspect]
     Active Substance: DEXAMETHASONE
     Indication: Pleuritic pain
     Route: 065
  4. ETODOLAC [Suspect]
     Active Substance: ETODOLAC
     Indication: Pleuritic pain
     Route: 065
  5. EVEROLIMUS [Suspect]
     Active Substance: EVEROLIMUS
     Indication: Product used for unknown indication
     Route: 065
  6. GABAPENTIN [Suspect]
     Active Substance: GABAPENTIN
     Indication: Pleuritic pain
     Route: 065
  7. HYDROMORPHONE [Suspect]
     Active Substance: HYDROMORPHONE
     Indication: Pleuritic pain
     Dosage: INTRATHECAL PAIN PUMP
     Route: 037
  8. IBUPROFEN [Suspect]
     Active Substance: IBUPROFEN
     Indication: Pleuritic pain
     Route: 065
  9. INDOMETHACIN [Suspect]
     Active Substance: INDOMETHACIN
     Indication: Pleuritic pain
     Route: 065
  10. LIDOCAINE [Suspect]
     Active Substance: LIDOCAINE
     Indication: Pleuritic pain
     Route: 065
  11. MORPHINE SULFATE [Suspect]
     Active Substance: MORPHINE SULFATE
     Indication: Pleuritic pain
     Route: 065
  12. NAPROXEN [Suspect]
     Active Substance: NAPROXEN
     Indication: Pleuritic pain
     Route: 065
  13. NORTRIPTYLINE [Suspect]
     Active Substance: NORTRIPTYLINE
     Indication: Pleuritic pain
     Route: 065
  14. OXYCODONE [Suspect]
     Active Substance: OXYCODONE
     Indication: Pleuritic pain
     Route: 065
  15. ACETAMINOPHEN\OXYCODONE HYDROCHLORIDE [Suspect]
     Active Substance: ACETAMINOPHEN\OXYCODONE HYDROCHLORIDE
     Indication: Pleuritic pain
     Route: 065
  16. PREGABALIN [Suspect]
     Active Substance: PREGABALIN
     Indication: Pleuritic pain
     Route: 065
  17. TRAMADOL [Suspect]
     Active Substance: TRAMADOL
     Indication: Pleuritic pain
     Route: 065
  18. TRAZODONE [Suspect]
     Active Substance: TRAZODONE HYDROCHLORIDE
     Indication: Pleuritic pain
     Route: 065
  19. LENVATINIB [Suspect]
     Active Substance: LENVATINIB
     Indication: Product used for unknown indication
     Route: 065
  20. BUPIVACAINE [Suspect]
     Active Substance: BUPIVACAINE
     Indication: Pleuritic pain
     Dosage: INTRATHECAL PAIN PUMP
     Route: 037
  21. KETOROLAC [Suspect]
     Active Substance: KETOROLAC TROMETHAMINE
     Indication: Pleuritic pain
     Route: 048
  22. KETOROLAC [Suspect]
     Active Substance: KETOROLAC TROMETHAMINE
     Dosage: 91.2 MILLIGRAM DAILY; CONTINUOUS INTRAVENOUS INFUSION (CIVI) AT 3.8MG/HOUR (91.2MG/DAY)
     Route: 041
  23. KETOROLAC [Suspect]
     Active Substance: KETOROLAC TROMETHAMINE
     Dosage: 72 MILLIGRAM DAILY; CONTINUOUS INTRAVENOUS INFUSION (CIVI) AT 3MG/HOUR (72MG/DAY)
     Route: 041
  24. METHADONE [Suspect]
     Active Substance: METHADONE HYDROCHLORIDE
     Indication: Pleuritic pain
     Route: 065
  25. ALPHA LIPOIC ACID [Suspect]
     Active Substance: .ALPHA.-LIPOIC ACID
     Indication: Pleuritic pain
     Route: 065
  26. TIZANIDINE [Suspect]
     Active Substance: TIZANIDINE
     Indication: Pleuritic pain
     Route: 065
  27. KETAMINE [Suspect]
     Active Substance: KETAMINE
     Indication: Pleuritic pain
     Route: 065
  28. KETAMINE [Suspect]
     Active Substance: KETAMINE
     Route: 048
  29. ACETAMINOPHEN [Concomitant]
     Active Substance: ACETAMINOPHEN
     Indication: Pleuritic pain
     Route: 065
  30. OMEPRAZOLE [Concomitant]
     Active Substance: OMEPRAZOLE
     Indication: Prophylaxis
     Route: 065

REACTIONS (7)
  - Diffuse alveolar damage [Fatal]
  - Respiratory failure [Fatal]
  - Dysphoria [Fatal]
  - Sedation [Fatal]
  - Constipation [Fatal]
  - Therapy non-responder [Fatal]
  - Off label use [Unknown]
